FAERS Safety Report 8263990-5 (Version None)
Quarter: 2012Q2

REPORT INFORMATION
  Report Type: 
  Country: None (occurrence: None)
  Receive Date: 20120406
  Receipt Date: 20080725
  Transmission Date: 20120825
  Serious: No
  Sender: FDA-Public Use
  Company Number: 2008BI019456

PATIENT
  Age: 70 Year
  Sex: Female

DRUGS (2)
  1. TYSABRI [Suspect]
     Indication: MULTIPLE SCLEROSIS
     Route: 042
     Dates: start: 20080723
  2. AVONEX [Concomitant]
     Indication: MULTIPLE SCLEROSIS
     Route: 030

REACTIONS (16)
  - HEADACHE [None]
  - DIABETES MELLITUS [None]
  - FATIGUE [None]
  - VISUAL IMPAIRMENT [None]
  - NAUSEA [None]
  - VISION BLURRED [None]
  - COGNITIVE DISORDER [None]
  - STRESS [None]
  - HEARING IMPAIRED [None]
  - ABDOMINAL DISCOMFORT [None]
  - POOR VENOUS ACCESS [None]
  - DYSPHONIA [None]
  - DIZZINESS [None]
  - PAIN [None]
  - INFLUENZA LIKE ILLNESS [None]
  - ASTHENIA [None]
